FAERS Safety Report 13854602 (Version 1)
Quarter: 2017Q3

REPORT INFORMATION
  Report Type: Spontaneous
  Country: FR (occurrence: FR)
  Receive Date: 20170809
  Receipt Date: 20170809
  Transmission Date: 20171127
  Serious: Yes (Hospitalization)
  Sender: FDA-Public Use
  Company Number: FR-LEADIANT BIOSCIENCES INC-2017STPI000581

PATIENT
  Age: 25 Year
  Sex: Female

DRUGS (14)
  1. DOXORUBICIN [Concomitant]
     Active Substance: DOXORUBICIN
  2. CYCLOPHOSPHAMIDE. [Concomitant]
     Active Substance: CYCLOPHOSPHAMIDE
  3. VINDESINE [Concomitant]
     Active Substance: VINDESINE
  4. BLEOMYCIN [Concomitant]
     Active Substance: BLEOMYCIN SULFATE
  5. VALACICLOVIR [Concomitant]
     Active Substance: VALACYCLOVIR HYDROCHLORIDE
  6. MATULANE [Suspect]
     Active Substance: PROCARBAZINE HYDROCHLORIDE
     Indication: HODGKIN^S DISEASE
     Dosage: 200 MG, DAILY
     Dates: start: 20170628, end: 20170628
  7. OFLOXACIN. [Concomitant]
     Active Substance: OFLOXACIN
  8. CEFIXIME. [Concomitant]
     Active Substance: CEFIXIME
  9. MATULANE [Suspect]
     Active Substance: PROCARBAZINE HYDROCHLORIDE
     Dosage: UNK
     Dates: start: 20170703
  10. CEFOTAXIME [Suspect]
     Active Substance: CEFOTAXIME SODIUM
     Indication: PYREXIA
     Dosage: 1 G,
     Dates: start: 20170628, end: 20170630
  11. BACTRIM [Suspect]
     Active Substance: SULFAMETHOXAZOLE\TRIMETHOPRIM
     Indication: INFECTION PROPHYLAXIS
     Dosage: UNK
     Dates: start: 20170703, end: 20170704
  12. ETOPOSIDE. [Concomitant]
     Active Substance: ETOPOSIDE
  13. PREDNISONE. [Concomitant]
     Active Substance: PREDNISONE
  14. TRIMETHOPROM [Concomitant]

REACTIONS (7)
  - Rash erythematous [Recovering/Resolving]
  - Rash erythematous [Recovering/Resolving]
  - Vomiting [Recovering/Resolving]
  - Hypotension [Recovering/Resolving]
  - Febrile bone marrow aplasia [Recovering/Resolving]
  - Pyrexia [Recovering/Resolving]
  - Rash erythematous [Recovering/Resolving]

NARRATIVE: CASE EVENT DATE: 20170603
